FAERS Safety Report 12436118 (Version 1)
Quarter: 2016Q2

REPORT INFORMATION
  Report Type: Spontaneous
  Country: US (occurrence: US)
  Receive Date: 20160604
  Receipt Date: 20160604
  Transmission Date: 20160815
  Serious: Yes (Hospitalization, Other)
  Sender: FDA-Public Use
  Company Number: US-BIOGEN-2013BI109601

PATIENT
  Sex: Female

DRUGS (5)
  1. AVONEX [Suspect]
     Active Substance: INTERFERON BETA-1A
     Route: 030
     Dates: start: 1998, end: 20000615
  2. AVONEX [Suspect]
     Active Substance: INTERFERON BETA-1A
     Route: 030
     Dates: start: 20120209, end: 2013
  3. AVONEX [Suspect]
     Active Substance: INTERFERON BETA-1A
     Indication: MULTIPLE SCLEROSIS
     Route: 030
     Dates: start: 19970615
  4. AVONEX [Suspect]
     Active Substance: INTERFERON BETA-1A
     Route: 030
     Dates: start: 20050503, end: 20110831
  5. AVONEX [Suspect]
     Active Substance: INTERFERON BETA-1A
     Route: 065
     Dates: end: 20000830

REACTIONS (22)
  - Gait disturbance [Unknown]
  - Malaise [Unknown]
  - Fatigue [Unknown]
  - Pruritus [Unknown]
  - Dehydration [Unknown]
  - Urinary retention [Unknown]
  - Proteus infection [Recovered/Resolved]
  - Adverse drug reaction [Recovered/Resolved]
  - Hyperhidrosis [Recovered/Resolved]
  - Pseudomonas infection [Unknown]
  - Escherichia infection [Unknown]
  - Cardiac disorder [Unknown]
  - Infection [Recovered/Resolved]
  - Bacterial infection [Unknown]
  - Ill-defined disorder [Recovered/Resolved]
  - Respiratory disorder [Unknown]
  - Urinary tract infection [Unknown]
  - Clostridium difficile colitis [Unknown]
  - Stress [Unknown]
  - Bladder catheterisation [Unknown]
  - Temperature intolerance [Unknown]
  - Memory impairment [Unknown]

NARRATIVE: CASE EVENT DATE: 2005
